FAERS Safety Report 15863675 (Version 4)
Quarter: 2019Q3

REPORT INFORMATION
  Report Type: Spontaneous
  Country: FR (occurrence: FR)
  Receive Date: 20190124
  Receipt Date: 20190708
  Transmission Date: 20191004
  Serious: Yes (Hospitalization, Other)
  Sender: FDA-Public Use
  Company Number: FR-MYLANLABS-2019M1006037

PATIENT
  Age: 66 Year
  Sex: Male
  Weight: 66 kg

DRUGS (50)
  1. DEXAMETHASONE. [Suspect]
     Active Substance: DEXAMETHASONE
     Dosage: UNK
     Route: 065
     Dates: start: 200805
  2. DEXAMETHASONE. [Suspect]
     Active Substance: DEXAMETHASONE
     Dosage: UNK
     Route: 065
     Dates: start: 201308
  3. REVLIMID [Suspect]
     Active Substance: LENALIDOMIDE
     Dosage: 5 MILLIGRAM
     Route: 048
     Dates: start: 200803, end: 200804
  4. REVLIMID [Suspect]
     Active Substance: LENALIDOMIDE
     Dosage: 105 MILLIGRAM, Q28D
     Route: 048
     Dates: start: 20141027
  5. KARDEGIC [Concomitant]
     Active Substance: ASPIRIN DL-LYSINE
     Indication: THROMBOSIS PROPHYLAXIS
     Dosage: 75 MILLIGRAM
     Dates: start: 20151217, end: 20160519
  6. NOVORAPID [Concomitant]
     Active Substance: INSULIN ASPART
     Indication: BLOOD GLUCOSE FLUCTUATION
     Dosage: 6 INTERNATIONAL UNIT
     Route: 065
     Dates: start: 20180301
  7. DEXAMETHASONE. [Suspect]
     Active Substance: DEXAMETHASONE
     Indication: PLASMA CELL MYELOMA
     Dosage: UNK
     Route: 065
     Dates: start: 20071210
  8. AREDIA [Concomitant]
     Active Substance: PAMIDRONATE DISODIUM
     Indication: PROPHYLAXIS
     Dosage: 60 MILLIGRAM, MONTHLY
     Route: 041
     Dates: start: 20161208
  9. CRESTOR [Concomitant]
     Active Substance: ROSUVASTATIN CALCIUM
     Indication: PROPHYLAXIS
     Dosage: 5 MILLIGRAM, QD
     Dates: start: 20151022, end: 20160603
  10. LANTUS [Concomitant]
     Active Substance: INSULIN GLARGINE
     Indication: BLOOD GLUCOSE INCREASED
     Dosage: 1 UNK, QD
  11. REVLIMID [Suspect]
     Active Substance: LENALIDOMIDE
     Dosage: 5 MILLIGRAM
     Route: 048
     Dates: start: 20130705, end: 20130926
  12. REVLIMID [Suspect]
     Active Substance: LENALIDOMIDE
     Dosage: 10 MILLIGRAM, QD
     Route: 048
     Dates: start: 20161201
  13. DARATUMUMAB [Concomitant]
     Active Substance: DARATUMUMAB
     Dosage: 1072 MILLIGRAM, MONTHLY
     Route: 041
     Dates: start: 20141027
  14. PARACETAMOL [Concomitant]
     Active Substance: ACETAMINOPHEN
     Indication: BONE PAIN
     Dosage: 500 MILLIGRAM
     Route: 048
     Dates: start: 201611
  15. INEXIUM                            /01479303/ [Concomitant]
     Active Substance: ESOMEPRAZOLE
     Indication: OESOPHAGITIS
     Dosage: 20 MILLIGRAM, QD
     Route: 048
     Dates: start: 20170329
  16. VALACICLOVIR [Concomitant]
     Active Substance: VALACYCLOVIR HYDROCHLORIDE
     Indication: BLADDER TRANSITIONAL CELL CARCINOMA RECURRENT
     Dosage: 500 MILLIGRAM, QD
     Route: 048
     Dates: start: 20161201
  17. EUPANTOL [Concomitant]
     Active Substance: PANTOPRAZOLE SODIUM
     Indication: PROPHYLAXIS
     Dosage: 20 MILLIGRAM
     Dates: start: 20151217, end: 20160603
  18. DEXAMETHASONE. [Suspect]
     Active Substance: DEXAMETHASONE
     Dosage: UNK
     Route: 065
     Dates: start: 20130605, end: 20130926
  19. BACTRIM [Concomitant]
     Active Substance: SULFAMETHOXAZOLE\TRIMETHOPRIM
     Indication: ANTIFUNGAL PROPHYLAXIS
     Dosage: 3 UNK, QW
     Route: 048
     Dates: start: 20161202
  20. KARDEGIC [Concomitant]
     Active Substance: ASPIRIN DL-LYSINE
     Indication: CAROTID ARTERIOSCLEROSIS
     Dosage: UNK
  21. CRESTOR [Concomitant]
     Active Substance: ROSUVASTATIN CALCIUM
     Dosage: 5 MILLIGRAM
     Route: 048
  22. BINOCRIT [Concomitant]
     Active Substance: ERYTHROPOIETIN
     Indication: ANAEMIA
     Dosage: UNK
     Dates: start: 20160114, end: 20160603
  23. PANTOPRAZOLE [Concomitant]
     Active Substance: PANTOPRAZOLE
     Indication: BLADDER TRANSITIONAL CELL CARCINOMA RECURRENT
     Dosage: 40 MILLIGRAM, QD
  24. ADENURIC [Concomitant]
     Active Substance: FEBUXOSTAT
     Indication: RHEUMATOID ARTHRITIS
     Dosage: 80 MILLIGRAM
     Route: 065
     Dates: start: 200707, end: 20160603
  25. CLOPIDOGREL [Concomitant]
     Active Substance: CLOPIDOGREL BISULFATE
     Indication: TRANSIENT ISCHAEMIC ATTACK
     Dosage: 150 MILLIGRAM, QD
     Route: 048
  26. REVLIMID [Suspect]
     Active Substance: LENALIDOMIDE
     Indication: PLASMA CELL MYELOMA
     Dosage: UNK
     Route: 048
     Dates: start: 2016
  27. REVLIMID [Suspect]
     Active Substance: LENALIDOMIDE
     Dosage: UNK
     Route: 048
     Dates: start: 200805
  28. DARATUMUMAB [Concomitant]
     Active Substance: DARATUMUMAB
     Dosage: 1160 MILLIGRAM, MONTHLY
     Route: 041
     Dates: start: 20161201
  29. PARACETAMOL [Concomitant]
     Active Substance: ACETAMINOPHEN
     Dosage: 3 GRAM, QD
     Route: 048
     Dates: start: 201611
  30. LEDERFOLINE [Concomitant]
     Active Substance: LEUCOVORIN CALCIUM
     Indication: PROPHYLAXIS
     Dosage: 50 MILLIGRAM, QW
     Route: 048
     Dates: start: 20161202
  31. PREDNISONE. [Concomitant]
     Active Substance: PREDNISONE
     Indication: RHEUMATOID ARTHRITIS
     Dosage: 10 MILLIGRAM
     Dates: start: 20160318, end: 20160603
  32. VALACICLOVIR [Concomitant]
     Active Substance: VALACYCLOVIR HYDROCHLORIDE
     Indication: INFECTION PROPHYLAXIS
     Dosage: 500 MILLIGRAM, QD
     Route: 048
     Dates: start: 201307, end: 20160603
  33. DEXAMETHASONE. [Suspect]
     Active Substance: DEXAMETHASONE
     Dosage: 20 MILLIGRAM
     Route: 048
     Dates: start: 20141027
  34. REVLIMID [Suspect]
     Active Substance: LENALIDOMIDE
     Dosage: 105 MILLIGRAM, Q28D
     Route: 048
     Dates: start: 20180512
  35. DARATUMUMAB [Concomitant]
     Active Substance: DARATUMUMAB
     Indication: PLASMA CELL MYELOMA
     Dosage: UNK
     Route: 041
     Dates: start: 20180711
  36. DARATUMUMAB [Concomitant]
     Active Substance: DARATUMUMAB
     Dosage: 1072 MILLIGRAM, MONTHLY
     Route: 041
     Dates: start: 20180411
  37. RACECADOTRIL [Concomitant]
     Active Substance: RACECADOTRIL
     Indication: DIARRHOEA
     Dosage: 100 MILLIGRAM
     Route: 048
     Dates: start: 20170303
  38. ASPEGIC                            /00002701/ [Concomitant]
     Active Substance: ASPIRIN
     Indication: PRODUCT USED FOR UNKNOWN INDICATION
     Dosage: 100 MILLIGRAM
  39. INNOHEP [Concomitant]
     Active Substance: TINZAPARIN SODIUM
     Indication: THROMBOSIS PROPHYLAXIS
     Dosage: 4500 INTERNATIONAL UNIT, QD
     Route: 058
     Dates: start: 20161201
  40. OXYNORM [Concomitant]
     Active Substance: OXYCODONE HYDROCHLORIDE
     Indication: BONE PAIN
     Dosage: 20 MILLIGRAM
     Route: 048
     Dates: start: 20170121
  41. CEFTRIAXONE. [Concomitant]
     Active Substance: CEFTRIAXONE
     Indication: RESPIRATORY TRACT INFECTION
     Dosage: UNK
     Dates: start: 20160217, end: 20160223
  42. DEXAMETHASONE. [Suspect]
     Active Substance: DEXAMETHASONE
     Dosage: 20 MILLIGRAM
     Route: 048
     Dates: start: 20180523
  43. REVLIMID [Suspect]
     Active Substance: LENALIDOMIDE
     Dosage: UNK
     Route: 048
     Dates: start: 201308
  44. DARATUMUMAB [Concomitant]
     Active Substance: DARATUMUMAB
     Dosage: UNK
     Route: 041
     Dates: start: 201410
  45. EUCREAS [Concomitant]
     Active Substance: METFORMIN HYDROCHLORIDE\VILDAGLIPTIN
     Indication: DIABETES MELLITUS
     Dosage: 2 UNK, QD
     Route: 048
  46. NOVORAPID [Concomitant]
     Active Substance: INSULIN ASPART
     Indication: DIABETES MELLITUS
     Dosage: 3 INTERNATIONAL UNIT
     Route: 058
     Dates: start: 20161202
  47. ATACAND [Concomitant]
     Active Substance: CANDESARTAN CILEXETIL
     Indication: HYPERTENSION
     Dosage: 16 MILLIGRAM, QD
     Route: 048
  48. TENORDATE [Concomitant]
     Active Substance: ATENOLOL\NIFEDIPINE
     Indication: HYPERTENSION
     Dosage: 1 UNK, QD
     Route: 048
  49. ALLOPURINOL. [Concomitant]
     Active Substance: ALLOPURINOL
     Indication: GOUT
     Dosage: 200 MILLIGRAM, QD
     Route: 048
  50. OXYCODONE [Concomitant]
     Active Substance: OXYCODONE
     Indication: BONE PAIN
     Dosage: 240 MILLIGRAM, QD
     Route: 048
     Dates: start: 20170121

REACTIONS (3)
  - Hypertension [Recovered/Resolved]
  - Bladder transitional cell carcinoma stage 0 [Recovered/Resolved]
  - Haematuria [Recovered/Resolved]

NARRATIVE: CASE EVENT DATE: 20160223
